FAERS Safety Report 23264839 (Version 1)
Quarter: 2023Q4

REPORT INFORMATION
  Report Type: Spontaneous
  Country: CN (occurrence: CN)
  Receive Date: 20231206
  Receipt Date: 20231206
  Transmission Date: 20240110
  Serious: Yes (Hospitalization, Other)
  Sender: FDA-Public Use
  Company Number: CN-AMGEN-CHNSP2023213254

PATIENT
  Age: 23 Year
  Sex: Male
  Weight: 70 kg

DRUGS (1)
  1. FILGRASTIM [Suspect]
     Active Substance: FILGRASTIM
     Indication: Haematopoietic stem cell mobilisation
     Dosage: 600 MICROGRAM, QD (FOR 6 DAYS)
     Route: 058
     Dates: start: 20200612, end: 20200617

REACTIONS (8)
  - Coronary artery thrombosis [Unknown]
  - Thrombocytosis [Unknown]
  - Acute myocardial infarction [Unknown]
  - Pericardial effusion [Unknown]
  - Pain in extremity [Recovered/Resolved]
  - Peripheral swelling [Unknown]
  - Pyrexia [Recovered/Resolved]
  - Erythema [Unknown]

NARRATIVE: CASE EVENT DATE: 20200101
